FAERS Safety Report 11480621 (Version 10)
Quarter: 2018Q3

REPORT INFORMATION
  Report Type: Report from Study
  Country: JP (occurrence: JP)
  Receive Date: 20150909
  Receipt Date: 20180802
  Transmission Date: 20181010
  Serious: Yes (Other)
  Sender: FDA-Public Use
  Company Number: JP-ASTELLAS-2011JP006888

PATIENT
  Age: 51 Year
  Sex: Female

DRUGS (94)
  1. NOVORAPID [Concomitant]
     Active Substance: INSULIN ASPART
     Indication: PRODUCT USED FOR UNKNOWN INDICATION
     Dosage: UNK UNK, UNKNOWN FREQ.
     Route: 058
     Dates: end: 20100401
  2. LOXONIN [Concomitant]
     Active Substance: LOXOPROFEN SODIUM
     Indication: BACK PAIN
     Route: 048
     Dates: start: 20141106, end: 20150204
  3. BANAN [Concomitant]
     Active Substance: CEFPODOXIME PROXETIL
     Indication: PHARYNGITIS
     Route: 048
     Dates: start: 20110106, end: 20110928
  4. DEPAS [Concomitant]
     Active Substance: ETIZOLAM
     Indication: INSOMNIA
     Dosage: 0.5 MG, ONCE DAILY
     Route: 048
     Dates: start: 20110203
  5. NAUZELIN [Concomitant]
     Active Substance: DOMPERIDONE
     Indication: CHOLELITHIASIS
     Dosage: UNK UNK, UNKNOWN FREQ.
     Route: 048
     Dates: start: 201301
  6. HUSTAZOL                           /00398402/ [Concomitant]
     Indication: UPPER RESPIRATORY TRACT INFECTION
     Route: 048
     Dates: start: 20110922, end: 20111214
  7. CLARITH [Concomitant]
     Active Substance: CLARITHROMYCIN
     Indication: UPPER RESPIRATORY TRACT INFECTION
     Route: 048
     Dates: start: 20111006, end: 20111016
  8. CLARITH [Concomitant]
     Active Substance: CLARITHROMYCIN
     Indication: BRONCHITIS
     Route: 048
     Dates: start: 20140109, end: 20140115
  9. SP TROCHE [Concomitant]
     Active Substance: DEQUALINIUM CHLORIDE
     Route: 048
     Dates: start: 20140109, end: 20140115
  10. CRAVIT [Concomitant]
     Active Substance: LEVOFLOXACIN
     Indication: UPPER RESPIRATORY TRACT INFECTION
     Route: 048
     Dates: start: 20141204, end: 20141206
  11. MAGLAX [Concomitant]
     Active Substance: MAGNESIUM OXIDE
     Indication: PROPHYLAXIS
     Route: 048
     Dates: start: 20140807, end: 20140816
  12. MOHRUS L [Concomitant]
     Active Substance: KETOPROFEN
     Indication: OSTEOARTHRITIS
     Route: 061
     Dates: start: 20150907
  13. PREDNISOLONE. [Concomitant]
     Active Substance: PREDNISOLONE
     Route: 048
     Dates: start: 20171102
  14. WARFARIN [Concomitant]
     Active Substance: WARFARIN
     Route: 048
     Dates: end: 20160302
  15. TALION [Concomitant]
     Active Substance: BEPOTASTINE
     Indication: URTICARIA
     Route: 048
     Dates: start: 20100401, end: 20110803
  16. ALLEGRA [Concomitant]
     Active Substance: FEXOFENADINE HYDROCHLORIDE
     Indication: URTICARIA
     Route: 048
     Dates: start: 20111006, end: 20121118
  17. DIOVAN [Concomitant]
     Active Substance: VALSARTAN
     Indication: PRODUCT USED FOR UNKNOWN INDICATION
     Route: 048
     Dates: end: 20160824
  18. HUSTAZOL                           /00398402/ [Concomitant]
     Indication: PHARYNGITIS
     Route: 048
     Dates: start: 20140410, end: 20140416
  19. PL [Concomitant]
     Active Substance: ACETAMINOPHEN\CAFFEINE\PROMETHAZINE\SALICYLAMIDE
     Route: 048
     Dates: start: 20140410, end: 20140416
  20. PL [Concomitant]
     Active Substance: ACETAMINOPHEN\CAFFEINE\PROMETHAZINE\SALICYLAMIDE
     Route: 048
     Dates: start: 20150507, end: 20150514
  21. CLARITH [Concomitant]
     Active Substance: CLARITHROMYCIN
     Route: 048
     Dates: start: 20140612, end: 20140618
  22. ASTOMIN [Concomitant]
     Active Substance: DIMEMORFAN
     Route: 048
     Dates: start: 20150323, end: 20150402
  23. METGLUCO [Concomitant]
     Active Substance: METFORMIN HYDROCHLORIDE
     Indication: PROPHYLAXIS
  24. MICAMLO [Concomitant]
     Active Substance: AMLODIPINE BESYLATE\TELMISARTAN
     Indication: PRODUCT USED FOR UNKNOWN INDICATION
     Dosage: UNK UNK, UNKNOWN FREQ.
     Route: 048
     Dates: start: 20160825, end: 20161026
  25. PREDNISOLONE. [Concomitant]
     Active Substance: PREDNISOLONE
     Route: 048
     Dates: start: 20121214, end: 20130206
  26. PREDNISOLONE. [Concomitant]
     Active Substance: PREDNISOLONE
     Route: 048
     Dates: start: 20130704, end: 20170315
  27. BUSCOPAN [Concomitant]
     Active Substance: BUTYLSCOPOLAMINE BROMIDE
     Indication: CHOLELITHIASIS
     Route: 048
     Dates: start: 20111208
  28. BUSCOPAN [Concomitant]
     Active Substance: BUTYLSCOPOLAMINE BROMIDE
     Route: 048
     Dates: start: 20141020, end: 20141102
  29. METHYCOBAL [Concomitant]
     Active Substance: METHYLCOBALAMIN
     Indication: PRODUCT USED FOR UNKNOWN INDICATION
     Dosage: 1000 UG, ONCE DAILY
     Route: 048
  30. FOSAMAC [Concomitant]
     Active Substance: ALENDRONATE SODIUM
     Indication: PROPHYLAXIS
     Route: 048
  31. HUSTAZOL                           /00398402/ [Concomitant]
     Indication: BRONCHITIS
     Route: 048
     Dates: start: 20140109, end: 20140115
  32. CLARITH [Concomitant]
     Active Substance: CLARITHROMYCIN
     Route: 048
     Dates: start: 20140807, end: 20140813
  33. SP TROCHE [Concomitant]
     Active Substance: DEQUALINIUM CHLORIDE
     Indication: UPPER RESPIRATORY TRACT INFECTION
     Route: 048
     Dates: start: 20131205, end: 20131211
  34. SP TROCHE [Concomitant]
     Active Substance: DEQUALINIUM CHLORIDE
     Route: 048
     Dates: start: 20140410, end: 20140416
  35. CRAVIT [Concomitant]
     Active Substance: LEVOFLOXACIN
     Indication: CHOLECYSTITIS
     Route: 048
     Dates: start: 20130103, end: 20130107
  36. CRAVIT [Concomitant]
     Active Substance: LEVOFLOXACIN
     Indication: CHOLECYSTITIS CHRONIC
     Route: 048
     Dates: start: 20130109, end: 20130113
  37. MICARDIS [Concomitant]
     Active Substance: TELMISARTAN
     Indication: PRODUCT USED FOR UNKNOWN INDICATION
     Route: 048
     Dates: start: 20161124
  38. GASTER [Concomitant]
     Active Substance: FAMOTIDINE
     Indication: PROPHYLAXIS
     Route: 048
     Dates: end: 20110831
  39. MERCAZOLE [Concomitant]
     Active Substance: CARBIMAZOLE
     Indication: PRODUCT USED FOR UNKNOWN INDICATION
     Route: 048
  40. WARFARIN [Concomitant]
     Active Substance: WARFARIN
     Route: 048
     Dates: start: 20160303, end: 20170906
  41. GLUFAST [Concomitant]
     Active Substance: MITIGLINIDE
     Indication: PRODUCT USED FOR UNKNOWN INDICATION
     Route: 048
     Dates: end: 20100630
  42. PARIET [Concomitant]
     Active Substance: RABEPRAZOLE SODIUM
     Indication: PROPHYLAXIS
     Route: 048
     Dates: start: 20110609, end: 20120404
  43. PRIMPERAN [Concomitant]
     Active Substance: METOCLOPRAMIDE HYDROCHLORIDE
     Indication: PRODUCT USED FOR UNKNOWN INDICATION
     Route: 048
     Dates: start: 20120105, end: 20130307
  44. PL [Concomitant]
     Active Substance: ACETAMINOPHEN\CAFFEINE\PROMETHAZINE\SALICYLAMIDE
     Route: 048
     Dates: start: 20140109, end: 20140115
  45. CLARITH [Concomitant]
     Active Substance: CLARITHROMYCIN
     Indication: PHARYNGITIS
     Route: 048
     Dates: start: 20131205, end: 20131211
  46. CRAVIT [Concomitant]
     Active Substance: LEVOFLOXACIN
     Route: 048
     Dates: start: 20150305, end: 20150308
  47. ASTOMIN [Concomitant]
     Active Substance: DIMEMORFAN
     Route: 048
     Dates: start: 20150305, end: 20150312
  48. MERISLON [Concomitant]
     Active Substance: BETAHISTINE MESILATE
     Indication: DIZZINESS
     Route: 048
     Dates: start: 20160107
  49. PREDNISOLONE. [Concomitant]
     Active Substance: PREDNISOLONE
     Route: 048
     Dates: start: 20170413, end: 20170705
  50. PREDNISOLONE. [Concomitant]
     Active Substance: PREDNISOLONE
     Route: 048
     Dates: start: 20170907, end: 20171101
  51. WARFARIN [Concomitant]
     Active Substance: WARFARIN
     Indication: LUPUS NEPHRITIS
     Route: 048
     Dates: end: 20120509
  52. LOXONIN [Concomitant]
     Active Substance: LOXOPROFEN SODIUM
     Indication: ARTHRALGIA
     Route: 048
     Dates: start: 20150402
  53. NAUZELIN [Concomitant]
     Active Substance: DOMPERIDONE
     Indication: CHOLECYSTITIS CHRONIC
     Route: 048
     Dates: start: 20140127, end: 20140210
  54. ASTOMIN [Concomitant]
     Active Substance: DIMEMORFAN
     Indication: UPPER RESPIRATORY TRACT INFECTION
     Route: 048
     Dates: start: 20141204, end: 20141211
  55. GRACEVIT [Concomitant]
     Active Substance: SITAFLOXACIN
     Indication: UPPER RESPIRATORY TRACT INFECTION
     Route: 048
     Dates: start: 20150323, end: 20150326
  56. METGLUCO [Concomitant]
     Active Substance: METFORMIN HYDROCHLORIDE
     Indication: DIABETES MELLITUS
     Route: 048
     Dates: start: 20150806
  57. MOHRUS L [Concomitant]
     Active Substance: KETOPROFEN
     Indication: SPINAL COLUMN STENOSIS
  58. TACROLIMUS. [Suspect]
     Active Substance: TACROLIMUS
     Indication: LUPUS NEPHRITIS
     Route: 048
     Dates: start: 20100107
  59. PREDNISOLONE. [Concomitant]
     Active Substance: PREDNISOLONE
     Route: 048
     Dates: start: 20130207, end: 20130703
  60. NORVASC [Concomitant]
     Active Substance: AMLODIPINE BESYLATE
     Indication: PRODUCT USED FOR UNKNOWN INDICATION
     Route: 048
     Dates: end: 20160824
  61. PARIET [Concomitant]
     Active Substance: RABEPRAZOLE SODIUM
     Indication: GASTROOESOPHAGEAL REFLUX DISEASE
     Route: 048
  62. CHOLEBINE [Concomitant]
     Active Substance: COLESTILAN CHLORIDE
     Indication: PRODUCT USED FOR UNKNOWN INDICATION
     Route: 048
  63. CYMBALTA [Concomitant]
     Active Substance: DULOXETINE HYDROCHLORIDE
     Indication: PRODUCT USED FOR UNKNOWN INDICATION
     Route: 048
     Dates: start: 20140612, end: 20141105
  64. MAGNESIUM OXIDE. [Concomitant]
     Active Substance: MAGNESIUM OXIDE
     Indication: PROPHYLAXIS
     Route: 048
     Dates: start: 20140904
  65. LYRICA [Concomitant]
     Active Substance: PREGABALIN
     Indication: ARTHRALGIA
     Route: 048
     Dates: start: 20150701, end: 20150722
  66. PREDNISOLONE. [Concomitant]
     Active Substance: PREDNISOLONE
     Route: 048
     Dates: start: 20110610, end: 20121213
  67. PREDNISOLONE. [Concomitant]
     Active Substance: PREDNISOLONE
     Route: 048
     Dates: start: 20170706, end: 20170906
  68. WARFARIN [Concomitant]
     Active Substance: WARFARIN
     Route: 048
     Dates: start: 20170907
  69. MUCOSTA [Concomitant]
     Active Substance: REBAMIPIDE
     Indication: PROPHYLAXIS
     Route: 048
     Dates: end: 20141105
  70. CARDENALIN [Concomitant]
     Active Substance: DOXAZOSIN MESYLATE
     Indication: PRODUCT USED FOR UNKNOWN INDICATION
     Route: 048
     Dates: end: 20160824
  71. MAGMITT [Concomitant]
     Active Substance: MAGNESIUM OXIDE
     Indication: CONSTIPATION
     Route: 048
     Dates: start: 20101202, end: 20110202
  72. BANAN [Concomitant]
     Active Substance: CEFPODOXIME PROXETIL
     Indication: BRONCHITIS
  73. HUSTAZOL                           /00398402/ [Concomitant]
     Indication: PHARYNGITIS
     Route: 048
     Dates: start: 20131205, end: 20131211
  74. PL [Concomitant]
     Active Substance: ACETAMINOPHEN\CAFFEINE\PROMETHAZINE\SALICYLAMIDE
     Indication: UPPER RESPIRATORY TRACT INFECTION
     Route: 048
     Dates: start: 20131205, end: 20131211
  75. PL [Concomitant]
     Active Substance: ACETAMINOPHEN\CAFFEINE\PROMETHAZINE\SALICYLAMIDE
     Route: 048
     Dates: start: 20141204, end: 20141211
  76. CLARITH [Concomitant]
     Active Substance: CLARITHROMYCIN
     Route: 048
     Dates: start: 20140410, end: 20140416
  77. CLARITH [Concomitant]
     Active Substance: CLARITHROMYCIN
     Route: 048
     Dates: start: 20140714, end: 20140720
  78. ASTOMIN [Concomitant]
     Active Substance: DIMEMORFAN
     Route: 048
     Dates: start: 20150507, end: 20150514
  79. AMOXICILLIN. [Concomitant]
     Active Substance: AMOXICILLIN
     Indication: PERIODONTITIS
     Route: 048
     Dates: start: 20160112, end: 20160114
  80. ACOFIDE [Concomitant]
     Active Substance: ACOTIAMIDE HYDROCHLORIDE
     Indication: GASTROOESOPHAGEAL REFLUX DISEASE
     Route: 048
     Dates: start: 20151116, end: 20171210
  81. PREDNISOLONE. [Concomitant]
     Active Substance: PREDNISOLONE
     Indication: LUPUS NEPHRITIS
     Route: 048
     Dates: end: 20110609
  82. PREDNISOLONE. [Concomitant]
     Active Substance: PREDNISOLONE
     Route: 048
     Dates: start: 20170316, end: 20170412
  83. BAYASPIRIN [Concomitant]
     Active Substance: ASPIRIN
     Indication: PRODUCT USED FOR UNKNOWN INDICATION
     Route: 048
  84. FOSAMAC [Concomitant]
     Active Substance: ALENDRONATE SODIUM
     Indication: PROPHYLAXIS
     Route: 048
     Dates: start: 20100107
  85. LOXONIN [Concomitant]
     Active Substance: LOXOPROFEN SODIUM
     Indication: HEADACHE
     Route: 048
     Dates: start: 20110106, end: 20140806
  86. URSO [Concomitant]
     Active Substance: URSODIOL
     Indication: PRODUCT USED FOR UNKNOWN INDICATION
     Route: 048
     Dates: start: 20110609, end: 20140420
  87. ALLEGRA [Concomitant]
     Active Substance: FEXOFENADINE HYDROCHLORIDE
     Indication: PROPHYLAXIS
     Route: 048
     Dates: start: 20130513, end: 20161123
  88. BUSCOPAN [Concomitant]
     Active Substance: BUTYLSCOPOLAMINE BROMIDE
     Indication: CHOLECYSTITIS CHRONIC
     Route: 048
     Dates: start: 20130109, end: 20140210
  89. NAUZELIN [Concomitant]
     Active Substance: DOMPERIDONE
     Route: 048
     Dates: start: 20141020, end: 20141102
  90. HUSTAZOL                           /00398402/ [Concomitant]
     Route: 048
     Dates: start: 20140508, end: 20140514
  91. PL [Concomitant]
     Active Substance: ACETAMINOPHEN\CAFFEINE\PROMETHAZINE\SALICYLAMIDE
     Route: 048
     Dates: start: 20150323, end: 20150402
  92. ADALAT [Concomitant]
     Active Substance: NIFEDIPINE
     Indication: PRODUCT USED FOR UNKNOWN INDICATION
     Route: 048
     Dates: start: 20161027
  93. JANUVIA [Concomitant]
     Active Substance: SITAGLIPTIN PHOSPHATE
     Indication: PROPHYLAXIS
     Route: 048
     Dates: start: 20160929
  94. EBASTEL [Concomitant]
     Active Substance: EBASTINE
     Indication: URTICARIA CHRONIC
     Route: 048
     Dates: start: 20161019, end: 20161102

REACTIONS (22)
  - Upper respiratory tract infection [Recovering/Resolving]
  - Pharyngitis [Recovered/Resolved]
  - Dizziness [Not Recovered/Not Resolved]
  - Rhinitis allergic [Not Recovered/Not Resolved]
  - Spinal column stenosis [Not Recovered/Not Resolved]
  - Headache [Not Recovered/Not Resolved]
  - Arthralgia [Not Recovered/Not Resolved]
  - Bronchitis [Recovered/Resolved]
  - Urticaria [Recovering/Resolving]
  - Cholelithiasis [Not Recovered/Not Resolved]
  - Hepatic steatosis [Not Recovered/Not Resolved]
  - Periodontitis [Recovered/Resolved]
  - Pharyngitis [Recovered/Resolved]
  - Urticaria chronic [Recovering/Resolving]
  - Diabetes mellitus [Recovering/Resolving]
  - Osteoarthritis [Not Recovered/Not Resolved]
  - Insomnia [Not Recovered/Not Resolved]
  - Back pain [Recovering/Resolving]
  - Constipation [Recovering/Resolving]
  - Cholecystitis chronic [Recovered/Resolved]
  - Cholecystitis infective [Recovering/Resolving]
  - Gastrooesophageal reflux disease [Not Recovered/Not Resolved]

NARRATIVE: CASE EVENT DATE: 20100301
